FAERS Safety Report 23664326 (Version 1)
Quarter: 2024Q1

REPORT INFORMATION
  Report Type: Spontaneous
  Country: US (occurrence: US)
  Receive Date: 20240322
  Receipt Date: 20240322
  Transmission Date: 20240410
  Serious: No
  Sender: FDA-Public Use
  Company Number: US-SA-SAC20240321000517

PATIENT
  Age: 29 Year
  Sex: Female

DRUGS (1)
  1. DUPIXENT [Suspect]
     Active Substance: DUPILUMAB
     Indication: Dermatitis atopic
     Dosage: UNK
     Route: 058
     Dates: start: 202402, end: 20240311

REACTIONS (10)
  - Muscle strain [Recovering/Resolving]
  - Asthenia [Recovering/Resolving]
  - Grip strength decreased [Recovering/Resolving]
  - Mobility decreased [Recovering/Resolving]
  - Nervous system disorder [Recovering/Resolving]
  - Blood creatine phosphokinase increased [Recovering/Resolving]
  - Red blood cell sedimentation rate increased [Recovering/Resolving]
  - C-reactive protein increased [Recovering/Resolving]
  - Myalgia [Recovering/Resolving]
  - Arthralgia [Recovering/Resolving]

NARRATIVE: CASE EVENT DATE: 20240101
